FAERS Safety Report 4268682-5 (Version None)
Quarter: 2004Q1

REPORT INFORMATION
  Report Type: 
  Country: None (occurrence: None)
  Receive Date: 20040112
  Receipt Date: 20031231
  Transmission Date: 20041129
  Serious: Yes (Disabling, Other)
  Sender: FDA-Public Use
  Company Number: CH-BRISTOL-MYERS SQUIBB COMPANY-12467213

PATIENT
  Sex: Female

DRUGS (3)
  1. VIDEX [Suspect]
     Indication: HIV INFECTION
     Route: 048
     Dates: start: 20031008, end: 20031105
  2. VIRAMUNE [Suspect]
     Indication: HIV INFECTION
     Route: 048
     Dates: start: 20031008, end: 20031105
  3. VIREAD [Suspect]
     Indication: HIV INFECTION
     Route: 048
     Dates: start: 20031008, end: 20031105

REACTIONS (8)
  - ASTHENIA [None]
  - DECREASED APPETITE [None]
  - HEPATIC TRAUMA [None]
  - HEPATITIS ACUTE [None]
  - NAUSEA [None]
  - PANCREATITIS [None]
  - PYREXIA [None]
  - URTICARIA [None]
